FAERS Safety Report 5729906-8 (Version None)
Quarter: 2008Q2

REPORT INFORMATION
  Report Type: 
  Country: None (occurrence: None)
  Receive Date: 20080502
  Receipt Date: 20080416
  Transmission Date: 20081010
  Serious: Yes (Hospitalization)
  Sender: FDA-Public Use
  Company Number: 2008SI000104

PATIENT
  Age: 63 Year
  Sex: Male
  Weight: 99.3 kg

DRUGS (8)
  1. CUBICIN [Suspect]
     Dosage: 5 MG/KG; Q24H; IV
     Route: 042
     Dates: start: 20070313, end: 20070406
  2. LEVAQUIN [Suspect]
     Indication: BACTERIAL INFECTION
     Dosage: 500 MG; QD; PO
     Route: 048
     Dates: start: 20070325, end: 20070403
  3. LEVAQUIN [Suspect]
     Indication: CATHETER RELATED INFECTION
     Dosage: 500 MG; QD; PO
     Route: 048
     Dates: start: 20070325, end: 20070403
  4. LEVAQUIN [Concomitant]
  5. LISINOPRIL [Concomitant]
  6. PLAVIX [Concomitant]
  7. TOPROL-XL [Concomitant]
  8. ZOCOR [Concomitant]

REACTIONS (5)
  - BLOOD CULTURE POSITIVE [None]
  - CATHETER RELATED INFECTION [None]
  - DIFFUSE ALVEOLAR DAMAGE [None]
  - INTERSTITIAL LUNG DISEASE [None]
  - NEUROPATHY PERIPHERAL [None]
